FAERS Safety Report 12077099 (Version 1)
Quarter: 2016Q1

REPORT INFORMATION
  Report Type: Not Available
  Country: None (occurrence: US)
  Receive Date: 20160215
  Receipt Date: 20160215
  Transmission Date: 20160526
  Serious: No
  Sender: FDA-Public Use
  Company Number: US-AKORN 15307

PATIENT
  Age: 87 Year
  Sex: Female

DRUGS (1)
  1. ZIOPTAN [Suspect]
     Active Substance: TAFLUPROST

REACTIONS (1)
  - Eye irritation [Recovered/Resolved]
